FAERS Safety Report 25010154 (Version 1)
Quarter: 2025Q1

REPORT INFORMATION
  Report Type: Spontaneous
  Country: DE (occurrence: DE)
  Receive Date: 20250225
  Receipt Date: 20250225
  Transmission Date: 20250409
  Serious: Yes (Hospitalization)
  Sender: DAIICHI
  Company Number: DE-DSJP-DS-2025-124893-DE

PATIENT
  Age: 70 Year
  Sex: Male

DRUGS (1)
  1. EDOXABAN TOSYLATE [Suspect]
     Active Substance: EDOXABAN TOSYLATE
     Indication: Atrial fibrillation
     Dosage: 60 MG, QD
     Route: 065
     Dates: start: 202402

REACTIONS (3)
  - Umbilical hernia [Not Recovered/Not Resolved]
  - Surgery [Unknown]
  - Nail bed inflammation [Not Recovered/Not Resolved]

NARRATIVE: CASE EVENT DATE: 20250201
